FAERS Safety Report 7878660-2 (Version None)
Quarter: 2011Q4

REPORT INFORMATION
  Report Type: 
  Country: None (occurrence: None)
  Receive Date: 20111101
  Receipt Date: 20111027
  Transmission Date: 20120403
  Serious: Yes (Hospitalization, Other)
  Sender: FDA-Public Use
  Company Number: US-AMGEN-USASP2011034797

PATIENT
  Age: 73 Year
  Sex: Male
  Weight: 100.68 kg

DRUGS (2)
  1. OMEPRAZOLE [Concomitant]
  2. NPLATE [Suspect]
     Indication: IDIOPATHIC THROMBOCYTOPENIC PURPURA
     Dosage: 205.44 MUG, QWK
     Route: 058
     Dates: start: 20110323, end: 20110713

REACTIONS (5)
  - THERAPEUTIC RESPONSE DECREASED [None]
  - THROMBOCYTOPENIA [None]
  - NIGHT SWEATS [None]
  - DRUG INEFFECTIVE [None]
  - PLATELET COUNT DECREASED [None]
